FAERS Safety Report 8966402 (Version 1)
Quarter: 2012Q4

REPORT INFORMATION
  Report Type: 
  Country: US (occurrence: US)
  Receive Date: 20121214
  Receipt Date: 20121214
  Transmission Date: 20130627
  Serious: Yes (Hospitalization)
  Sender: FDA-Public Use
  Company Number: US-GLAXOSMITHKLINE-B0848418A

PATIENT
  Age: 40 Year
  Sex: Male

DRUGS (4)
  1. LETAIRIS [Suspect]
     Indication: PULMONARY ARTERIAL HYPERTENSION
     Dosage: 5MG Per day
     Route: 048
     Dates: start: 20120605
  2. LETAIRIS [Suspect]
     Indication: PRODUCT USED FOR UNKNOWN INDICATION
  3. EPOPROSTENOL [Suspect]
  4. ADCIRCA [Suspect]

REACTIONS (2)
  - Drug screen positive [Unknown]
  - Headache [Not Recovered/Not Resolved]
